FAERS Safety Report 21540539 (Version 1)
Quarter: 2022Q4

REPORT INFORMATION
  Report Type: Spontaneous
  Country: RU (occurrence: None)
  Receive Date: 20221102
  Receipt Date: 20221102
  Transmission Date: 20230113
  Serious: Yes (Other)
  Sender: FDA-Public Use
  Company Number: RU-ROCHE-3208575

PATIENT
  Sex: Female

DRUGS (1)
  1. ALECTINIB [Suspect]
     Active Substance: ALECTINIB
     Indication: Product used for unknown indication
     Route: 065

REACTIONS (3)
  - Pleural effusion [Unknown]
  - Osteosclerosis [Unknown]
  - Hydrothorax [Unknown]

NARRATIVE: CASE EVENT DATE: 20190401
